FAERS Safety Report 18629580 (Version 5)
Quarter: 2021Q1

REPORT INFORMATION
  Report Type: Spontaneous
  Country: US (occurrence: US)
  Receive Date: 20201217
  Receipt Date: 20210301
  Transmission Date: 20210419
  Serious: Yes (Hospitalization, Other)
  Sender: FDA-Public Use
  Company Number: US-TEVA-2020-US-1859433

PATIENT
  Age: 42 Year
  Sex: Female

DRUGS (6)
  1. TREPROSTINIL MDV TEVA [Suspect]
     Active Substance: TREPROSTINIL
     Route: 041
     Dates: start: 201910
  2. TREPROSTINIL MDV TEVA [Suspect]
     Active Substance: TREPROSTINIL
     Indication: PULMONARY ARTERIAL HYPERTENSION
     Dosage: DOSE: 55.1 NG/KG/MIN; FREQUENCY: CONTINUOUS
     Route: 042
     Dates: start: 20190724
  3. AMBRISENTAN [Suspect]
     Active Substance: AMBRISENTAN
     Indication: PULMONARY HYPERTENSION
     Dosage: 10 MILLIGRAM DAILY;
     Dates: start: 20160824
  4. REMODULIN [Suspect]
     Active Substance: TREPROSTINIL
     Indication: PULMONARY ARTERIAL HYPERTENSION
     Dosage: DOSE: UNK MG/ML
     Route: 041
  5. TREPROSTINIL GENERIC SANDOZ [Suspect]
     Active Substance: TREPROSTINIL
     Indication: PULMONARY ARTERIAL HYPERTENSION
     Route: 041
     Dates: start: 20190731
  6. ADEMPAS [Suspect]
     Active Substance: RIOCIGUAT
     Indication: PULMONARY ARTERIAL HYPERTENSION
     Route: 065
     Dates: start: 20160630

REACTIONS (10)
  - Nausea [Unknown]
  - Systemic lupus erythematosus [Recovered/Resolved]
  - Complication associated with device [Unknown]
  - Headache [Unknown]
  - Pain in jaw [Unknown]
  - Arthralgia [Unknown]
  - Pleuritic pain [Unknown]
  - Staphylococcal infection [Not Recovered/Not Resolved]
  - Pain [Unknown]
  - Musculoskeletal chest pain [Unknown]

NARRATIVE: CASE EVENT DATE: 202012
